FAERS Safety Report 5417101-1 (Version None)
Quarter: 2007Q3

REPORT INFORMATION
  Report Type: 
  Country: None (occurrence: None)
  Receive Date: 20070718
  Receipt Date: 20060623
  Transmission Date: 20080115
  Serious: Yes (Other)
  Sender: FDA-Public Use
  Company Number: 2006064509

PATIENT
  Age: 63 Year
  Sex: Male
  Weight: 99.7913 kg

DRUGS (2)
  1. CELEBREX [Suspect]
     Indication: ILL-DEFINED DISORDER
     Dosage: 200 MG (1 IN 1 D)
     Dates: start: 20020830
  2. VIOXX [Suspect]
     Indication: ILL-DEFINED DISORDER
     Dosage: (25 MG)
     Dates: start: 20010101

REACTIONS (1)
  - INTRACARDIAC THROMBUS [None]
